FAERS Safety Report 4516599-0 (Version None)
Quarter: 2004Q4

REPORT INFORMATION
  Report Type: 
  Country: None (occurrence: None)
  Receive Date: 20041202
  Receipt Date: 20041012
  Transmission Date: 20050328
  Serious: Yes (Hospitalization)
  Sender: FDA-Public Use
  Company Number: DE-MERCK-0410DEU00387

PATIENT
  Age: 75 Year
  Sex: Male

DRUGS (5)
  1. VIOXX [Suspect]
     Indication: SCIATICA
     Route: 048
     Dates: start: 20040705, end: 20040701
  2. VIOXX [Suspect]
     Route: 048
     Dates: start: 20040701, end: 20040831
  3. ISOSORBIDE MONONITRATE [Concomitant]
     Route: 065
     Dates: start: 19880401
  4. NIFEDIPINE [Concomitant]
     Route: 065
     Dates: start: 19880101
  5. ASPIRIN [Concomitant]
     Route: 065
     Dates: start: 19880101

REACTIONS (2)
  - DEEP VEIN THROMBOSIS [None]
  - PULMONARY EMBOLISM [None]
